FAERS Safety Report 5098204-0 (Version None)
Quarter: 2006Q3

REPORT INFORMATION
  Report Type: 
  Country: None (occurrence: None)
  Receive Date: 20060906
  Receipt Date: 20060523
  Transmission Date: 20061208
  Serious: No
  Sender: FDA-Public Use
  Company Number: 2006SP001439

PATIENT
  Age: 85 Year
  Sex: Male
  Weight: 56.8 kg

DRUGS (5)
  1. REQUIP [Suspect]
     Indication: DRUG USE FOR UNKNOWN INDICATION
     Route: 065
  2. LUNESTA [Suspect]
     Indication: INSOMNIA
     Dosage: 3MG AT NIGHT
     Route: 048
     Dates: start: 20060101
  3. ZOLOFT [Concomitant]
  4. XANAX [Concomitant]
  5. WELLBUTRIN [Concomitant]

REACTIONS (2)
  - DIZZINESS [None]
  - GAIT DISTURBANCE [None]
